FAERS Safety Report 6566448-4 (Version None)
Quarter: 2010Q1

REPORT INFORMATION
  Report Type: 
  Country: None (occurrence: None)
  Receive Date: 20100202
  Receipt Date: 20100129
  Transmission Date: 20100710
  Serious: Yes (Death)
  Sender: FDA-Public Use
  Company Number: PHEH2009US10600

PATIENT
  Sex: Female

DRUGS (1)
  1. GLEEVEC [Suspect]
     Indication: CHRONIC MYELOID LEUKAEMIA
     Dosage: 400MG, DAILY
     Route: 048

REACTIONS (4)
  - CARDIAC DISORDER [None]
  - HAIR TEXTURE ABNORMAL [None]
  - LUNG TRANSPLANT [None]
  - MALIGNANT NEOPLASM PROGRESSION [None]
